FAERS Safety Report 8363323-X (Version None)
Quarter: 2012Q2

REPORT INFORMATION
  Report Type: 
  Country: None (occurrence: None)
  Receive Date: 20120516
  Receipt Date: 20120504
  Transmission Date: 20120825
  Serious: Yes (Hospitalization, Other)
  Sender: FDA-Public Use
  Company Number: US-SANOFI-AVENTIS-2012SA031944

PATIENT
  Age: 66 Year
  Sex: Female

DRUGS (4)
  1. CYCLOSPORINE [Concomitant]
  2. LOVENOX [Suspect]
     Route: 058
  3. SELECTIVE IMMUNOSUPPRESSIVE AGENTS [Suspect]
     Route: 042
     Dates: start: 20120215, end: 20120307
  4. PREDNISONE [Concomitant]

REACTIONS (4)
  - HAEMATOMA [None]
  - MEDICATION ERROR [None]
  - RENAL FAILURE [None]
  - THROMBOCYTOPENIA [None]
